FAERS Safety Report 4429268-2 (Version None)
Quarter: 2004Q3

REPORT INFORMATION
  Report Type: 
  Country: None (occurrence: None)
  Receive Date: 20040818
  Receipt Date: 20040818
  Transmission Date: 20050211
  Serious: Yes (Hospitalization)
  Sender: FDA-Public Use
  Company Number: None

PATIENT
  Age: 82 Year
  Sex: Male
  Weight: 70 kg

DRUGS (2)
  1. DIAZEPAM [Suspect]
     Indication: MEDICATION ERROR
     Dosage: 30 MG QID X 2 ORAL
     Route: 048
     Dates: start: 20040116, end: 20040116
  2. DILTIAZEM [Suspect]

REACTIONS (3)
  - COMA [None]
  - HYPOTENSION [None]
  - MEDICATION ERROR [None]
